FAERS Safety Report 6022580-5 (Version None)
Quarter: 2008Q4

REPORT INFORMATION
  Report Type: 
  Country: None (occurrence: None)
  Receive Date: 20081230
  Receipt Date: 20081223
  Transmission Date: 20090506
  Serious: Yes (Other)
  Sender: FDA-Public Use
  Company Number: US-BIOGENIDEC-2008BI032776

PATIENT
  Age: 48 Year
  Sex: Female

DRUGS (1)
  1. TYSABRI [Suspect]
     Indication: MULTIPLE SCLEROSIS
     Route: 042
     Dates: start: 20080723

REACTIONS (5)
  - BONE PAIN [None]
  - FALL [None]
  - OSTEOPOROSIS [None]
  - PAIN [None]
  - UPPER LIMB FRACTURE [None]
